FAERS Safety Report 9356886 (Version 1)
Quarter: 2013Q2

REPORT INFORMATION
  Report Type: Report from Study
  Country: MX (occurrence: MX)
  Receive Date: 20130620
  Receipt Date: 20130620
  Transmission Date: 20140414
  Serious: Yes (Other)
  Sender: FDA-Public Use
  Company Number: MX-ROCHE-1237324

PATIENT
  Sex: Female

DRUGS (1)
  1. HERCEPTIN [Suspect]
     Indication: BREAST CANCER
     Route: 065

REACTIONS (8)
  - Aphagia [Unknown]
  - Renal pain [Unknown]
  - Immune system disorder [Unknown]
  - Tongue discolouration [Unknown]
  - Plicated tongue [Unknown]
  - Pain in extremity [Unknown]
  - Dizziness [Unknown]
  - Sleep disorder [Unknown]
